FAERS Safety Report 11783545 (Version 1)
Quarter: 2015Q4

REPORT INFORMATION
  Report Type: Report from Study
  Country: DE (occurrence: DE)
  Receive Date: 20151127
  Receipt Date: 20151127
  Transmission Date: 20160305
  Serious: Yes (Hospitalization)
  Sender: FDA-Public Use
  Company Number: DE-UCBSA-2015037624

PATIENT
  Age: 58 Year
  Sex: Male
  Weight: 100 kg

DRUGS (5)
  1. PINDOLOL. [Concomitant]
     Active Substance: PINDOLOL
     Indication: PROPHYLAXIS
     Dosage: 20 MG, ONCE DAILY (QD)
     Route: 048
  2. CERTOLIZUMAB PEGOL [Suspect]
     Active Substance: CERTOLIZUMAB PEGOL
     Indication: AXIAL SPONDYLOARTHRITIS
     Dosage: 200 MG, EV 2 WEEKS(QOW)
     Route: 058
     Dates: start: 20150812
  3. ACEMETACIN [Concomitant]
     Active Substance: ACEMETACIN
     Indication: AXIAL SPONDYLOARTHRITIS
     Dosage: 60 MG, 2X/DAY (BID)
     Route: 048
  4. XARELTO [Suspect]
     Active Substance: RIVAROXABAN
     Indication: THROMBOSIS
     Dosage: 20 MG, 2X/DAY (BID)
     Route: 048
     Dates: start: 2012
  5. ALLOPURINOL. [Concomitant]
     Active Substance: ALLOPURINOL
     Indication: HYPERURICAEMIA
     Dosage: 100 MG, ONCE DAILY (QD)
     Route: 048

REACTIONS (1)
  - Gastrointestinal haemorrhage [Recovered/Resolved]

NARRATIVE: CASE EVENT DATE: 20151028
